FAERS Safety Report 7772936-5 (Version None)
Quarter: 2011Q3

REPORT INFORMATION
  Report Type: 
  Country: None (occurrence: None)
  Receive Date: 20110922
  Receipt Date: 20110601
  Transmission Date: 20111222
  Serious: No
  Sender: FDA-Public Use
  Company Number: US-ASTRAZENECA-2011SE17483

PATIENT
  Age: 39 Year
  Sex: Female
  Weight: 70.3 kg

DRUGS (7)
  1. SEROQUEL XR [Suspect]
     Route: 048
     Dates: start: 20110328, end: 20110402
  2. SEROQUEL XR [Suspect]
     Route: 048
     Dates: start: 20110315, end: 20110328
  3. SEROQUEL XR [Suspect]
     Indication: SCHIZOPHRENIA
     Dosage: 25 MG, DAILY
     Route: 048
     Dates: start: 20110301
  4. SEROQUEL XR [Suspect]
     Dosage: HALF A TABLET
     Route: 048
  5. SEROQUEL XR [Suspect]
     Route: 048
     Dates: start: 20110403, end: 20110406
  6. CYMBALTA [Suspect]
     Route: 065
  7. VITAMIN TAB [Concomitant]

REACTIONS (7)
  - DYSPHAGIA [None]
  - DYSPNOEA [None]
  - MYDRIASIS [None]
  - RASH [None]
  - CHILLS [None]
  - TENSION HEADACHE [None]
  - PHOTOPHOBIA [None]
